FAERS Safety Report 22060285 (Version 1)
Quarter: 2023Q1

REPORT INFORMATION
  Report Type: Spontaneous
  Country: US (occurrence: US)
  Receive Date: 20230303
  Receipt Date: 20230303
  Transmission Date: 20230418
  Serious: No
  Sender: FDA-Public Use
  Company Number: US-VYERA PHARMACEUTICALS, LLC-2022VYE00018

PATIENT
  Age: 43 Year
  Sex: Male

DRUGS (3)
  1. DARAPRIM [Suspect]
     Active Substance: PYRIMETHAMINE
     Indication: Toxoplasmosis
     Dosage: 75 MG, 1X/DAY FOR 30 DAYS
     Route: 048
     Dates: start: 20220604
  2. LEUCOVORIN [Concomitant]
     Active Substance: LEUCOVORIN
     Dosage: 25 MG, 1X/DAY
  3. SULFADIAZINE [Concomitant]
     Active Substance: SULFADIAZINE
     Dosage: 1500 MG, 4X/DAY

REACTIONS (3)
  - Fatigue [Not Recovered/Not Resolved]
  - Asthenia [Not Recovered/Not Resolved]
  - Vomiting [Not Recovered/Not Resolved]

NARRATIVE: CASE EVENT DATE: 20220601
